FAERS Safety Report 5529449-0 (Version None)
Quarter: 2007Q4

REPORT INFORMATION
  Report Type: 
  Country: None (occurrence: None)
  Receive Date: 20071129
  Receipt Date: 20071116
  Transmission Date: 20080405
  Serious: Yes (Other)
  Sender: FDA-Public Use
  Company Number: JP-ELI_LILLY_AND_COMPANY-JP200708003222

PATIENT
  Sex: Female
  Weight: 40 kg

DRUGS (3)
  1. EVISTA [Suspect]
     Indication: OSTEOPOROSIS POSTMENOPAUSAL
     Dosage: 60 MG, DAILY (1/D)
     Route: 048
     Dates: start: 20050305, end: 20070719
  2. CARFENIL [Concomitant]
     Indication: RHEUMATOID ARTHRITIS
     Dosage: 80 MG, 2/D
     Route: 048
     Dates: start: 20070123, end: 20070719
  3. TILCOTIL [Concomitant]
     Dosage: 20 MG, DAILY (1/D)
     Route: 048
     Dates: start: 20060502, end: 20070719

REACTIONS (4)
  - ANAEMIA [None]
  - BLOOD CREATININE INCREASED [None]
  - HYPOALBUMINAEMIA [None]
  - HYPOPROTEINAEMIA [None]
